FAERS Safety Report 16753687 (Version 1)
Quarter: 2019Q3

REPORT INFORMATION
  Report Type: Spontaneous
  Country: US (occurrence: US)
  Receive Date: 20190829
  Receipt Date: 20190829
  Transmission Date: 20191005
  Serious: No
  Sender: FDA-Public Use
  Company Number: US-TEVA-2019-US-1102124

PATIENT
  Sex: Female

DRUGS (1)
  1. AJOVY [Suspect]
     Active Substance: FREMANEZUMAB-VFRM
     Indication: MIGRAINE
     Dosage: LAST INJECTION (THIRD) ON 22-AUG-2019
     Dates: start: 201906

REACTIONS (2)
  - Injection site rash [Unknown]
  - Rash [Unknown]

NARRATIVE: CASE EVENT DATE: 201907
